FAERS Safety Report 5526134-6 (Version None)
Quarter: 2007Q4

REPORT INFORMATION
  Report Type: 
  Country: None (occurrence: None)
  Receive Date: 20071120
  Receipt Date: 20071112
  Transmission Date: 20080405
  Serious: Yes (Hospitalization)
  Sender: FDA-Public Use
  Company Number: PHNU2007DE03751

PATIENT
  Sex: Female

DRUGS (12)
  1. TEGRETOL [Suspect]
     Dosage: 600 MG/DAY, ORAL, 400 MG/DAY, ORAL, 200 MG/DAY, ORAL
     Route: 048
     Dates: start: 20060501, end: 20070404
  2. TEGRETOL [Suspect]
     Dosage: 600 MG/DAY, ORAL, 400 MG/DAY, ORAL, 200 MG/DAY, ORAL
     Route: 048
     Dates: start: 20070405, end: 20070406
  3. TEGRETOL [Suspect]
     Dosage: 600 MG/DAY, ORAL, 400 MG/DAY, ORAL, 200 MG/DAY, ORAL
     Route: 048
     Dates: start: 20070407, end: 20070411
  4. HYDROCHLOROTHIAZIDE [Suspect]
     Dosage: 25 MG/DAY
     Dates: start: 20070101, end: 20070518
  5. LORZAAR PLUS(HYDROCHLOROTHIAZIDE, LOSARTAN POTASSIUM) UNKNOWN [Suspect]
     Dosage: 200 MG/DAY, ORAL
     Route: 048
     Dates: start: 20060501, end: 20070517
  6. LORZAAR PLUS(HYDROCHLOROTHIAZIDE, LOSARTAN POTASSIUM) TABLET, 100/25MG [Suspect]
     Dosage: 2 DF/DAY, ORAL
     Route: 048
     Dates: start: 20070518, end: 20070527
  7. LORZAAR PLUS(HYDROCHLOROTHIAZIDE, LOSARTAN POTASSIUM) TABLET, 50/12.5M [Suspect]
     Dosage: 2 DF/DAY, ORAL
     Route: 048
     Dates: start: 20070528
  8. LORZAAR PLUS(HYDROCHLOROTHIAZIDE, LOSARTAN POTASSIUM) TABLET, 50/12.5M [Suspect]
     Dosage: 2 DF/DAY, ORAL
     Route: 048
     Dates: start: 20070528
  9. PANTOZOL (PANTOPRAZOLE SODIUM) [Concomitant]
  10. CONCOR (BISOPROLOL FUMARATE) [Concomitant]
  11. AMLODIPINE [Concomitant]
  12. SODIUM CHLORIDE (SODIUM CHLORIDE) TABLET [Concomitant]

REACTIONS (40)
  - AGITATION [None]
  - ANXIETY [None]
  - BLOOD ALKALINE PHOSPHATASE INCREASED [None]
  - BLOOD BICARBONATE INCREASED [None]
  - BLOOD CALCIUM DECREASED [None]
  - BLOOD CHOLESTEROL INCREASED [None]
  - BLOOD COPPER INCREASED [None]
  - BLOOD CREATINE PHOSPHOKINASE INCREASED [None]
  - BLOOD GLUCOSE INCREASED [None]
  - BLOOD OSMOLARITY DECREASED [None]
  - BLOOD UREA INCREASED [None]
  - BUNDLE BRANCH BLOCK RIGHT [None]
  - CERULOPLASMIN INCREASED [None]
  - CYCLOTHYMIC DISORDER [None]
  - DEPRESSED MOOD [None]
  - DISTURBANCE IN ATTENTION [None]
  - DIZZINESS [None]
  - ELECTROCARDIOGRAM T WAVE AMPLITUDE INCREASED [None]
  - EOSINOPHIL PERCENTAGE DECREASED [None]
  - FALL [None]
  - GAMMA-GLUTAMYLTRANSFERASE INCREASED [None]
  - HAEMATOCRIT DECREASED [None]
  - HAEMOGLOBIN DECREASED [None]
  - HALLUCINATION, AUDITORY [None]
  - HYPOKALAEMIA [None]
  - INAPPROPRIATE ANTIDIURETIC HORMONE SECRETION [None]
  - INTERNATIONAL NORMALISED RATIO DECREASED [None]
  - LYMPHOCYTE PERCENTAGE DECREASED [None]
  - MANIA [None]
  - MEAN CELL HAEMOGLOBIN CONCENTRATION INCREASED [None]
  - MEMORY IMPAIRMENT [None]
  - MONOCYTE PERCENTAGE INCREASED [None]
  - PARANOIA [None]
  - PERSECUTORY DELUSION [None]
  - PROTEIN URINE PRESENT [None]
  - SERUM FERRITIN INCREASED [None]
  - URINARY SEDIMENT PRESENT [None]
  - URINE BILIRUBIN INCREASED [None]
  - URINE KETONE BODY PRESENT [None]
  - WHITE BLOOD CELL COUNT DECREASED [None]
